FAERS Safety Report 24012533 (Version 6)
Quarter: 2025Q2

REPORT INFORMATION
  Report Type: Spontaneous
  Country: US (occurrence: US)
  Receive Date: 20240626
  Receipt Date: 20250604
  Transmission Date: 20250716
  Serious: No
  Sender: BIOGEN
  Company Number: US-BIOGEN-2024BI01270751

PATIENT
  Sex: Male

DRUGS (2)
  1. SKYCLARYS [Suspect]
     Active Substance: OMAVELOXOLONE
     Indication: Friedreich^s ataxia
     Route: 050
     Dates: start: 20240605
  2. SKYCLARYS [Suspect]
     Active Substance: OMAVELOXOLONE
     Route: 050
     Dates: start: 20240605

REACTIONS (14)
  - Heart rate increased [Unknown]
  - Lack of satiety [Unknown]
  - Dyspepsia [Unknown]
  - Constipation [Unknown]
  - Diarrhoea [Unknown]
  - Headache [Unknown]
  - Product dose omission in error [Unknown]
  - Renal function test abnormal [Unknown]
  - Blood potassium increased [Unknown]
  - Blood calcium increased [Unknown]
  - Decubitus ulcer [Unknown]
  - Blood cholesterol abnormal [Unknown]
  - Total cholesterol/HDL ratio abnormal [Unknown]
  - Low density lipoprotein abnormal [Unknown]
